FAERS Safety Report 21598891 (Version 4)
Quarter: 2023Q1

REPORT INFORMATION
  Report Type: Report from Study
  Country: AR (occurrence: AR)
  Receive Date: 20221115
  Receipt Date: 20230110
  Transmission Date: 20230417
  Serious: Yes (Hospitalization, Other)
  Sender: FDA-Public Use
  Company Number: AR-002147023-NVSC2019AR081107

PATIENT
  Age: 24 Year
  Sex: Female
  Weight: 74 kg

DRUGS (10)
  1. ASCIMINIB [Suspect]
     Active Substance: ASCIMINIB
     Indication: Chronic myeloid leukaemia
     Dosage: 80 MG, BID
     Route: 048
     Dates: start: 20191016, end: 20191225
  2. ASCIMINIB [Suspect]
     Active Substance: ASCIMINIB
     Dosage: UNK, BID
     Route: 048
     Dates: start: 20191226, end: 20200204
  3. ASCIMINIB [Suspect]
     Active Substance: ASCIMINIB
     Dosage: 80 MG, BID
     Route: 048
     Dates: start: 20200205, end: 20200208
  4. ASCIMINIB [Suspect]
     Active Substance: ASCIMINIB
     Dosage: 20 MG, QD
     Route: 048
     Dates: start: 20200209, end: 20200209
  5. ASCIMINIB [Suspect]
     Active Substance: ASCIMINIB
     Dosage: UNK, BID
     Route: 048
     Dates: start: 20200210, end: 20200213
  6. ASCIMINIB [Suspect]
     Active Substance: ASCIMINIB
     Dosage: 20 MG, QD
     Route: 048
     Dates: start: 20200214, end: 20200214
  7. ASCIMINIB [Suspect]
     Active Substance: ASCIMINIB
     Dosage: 20 MG, BID
     Route: 048
     Dates: start: 20200215, end: 20200428
  8. ASCIMINIB [Suspect]
     Active Substance: ASCIMINIB
     Dosage: 40 MG, BID
     Route: 048
     Dates: start: 20200429
  9. ESTRADIOL\NOMEGESTROL ACETATE [Concomitant]
     Active Substance: ESTRADIOL\NOMEGESTROL ACETATE
     Indication: Contraception
     Dosage: UNK
     Route: 065
     Dates: start: 20190925, end: 20191229
  10. FOLIC ACID [Concomitant]
     Active Substance: FOLIC ACID
     Indication: Anaemia prophylaxis
     Dosage: UNK
     Route: 065
     Dates: start: 20190817, end: 20210623

REACTIONS (2)
  - Febrile neutropenia [Recovered/Resolved]
  - Thrombocytopenia [Recovering/Resolving]

NARRATIVE: CASE EVENT DATE: 20191226
